FAERS Safety Report 7250171-7 (Version None)
Quarter: 2011Q1

REPORT INFORMATION
  Report Type: 
  Country: None (occurrence: None)
  Receive Date: 20110128
  Receipt Date: 20110114
  Transmission Date: 20110831
  Serious: Yes (Hospitalization)
  Sender: FDA-Public Use
  Company Number: GR-BAYER-2011-004093

PATIENT
  Age: 80 Year
  Sex: Female

DRUGS (2)
  1. CIPROXIN [Suspect]
     Indication: ANTIBIOTIC PROPHYLAXIS
     Dosage: 500 MG, ONCE
     Route: 042
  2. THYROXIN [Concomitant]
     Indication: HYPOTHYROIDISM
     Dosage: 0.1 MG, QD

REACTIONS (7)
  - KOUNIS SYNDROME [None]
  - HYPERSENSITIVITY [None]
  - RASH PRURITIC [None]
  - CHEST PAIN [None]
  - BLOOD IMMUNOGLOBULIN E INCREASED [None]
  - HYPERHIDROSIS [None]
  - ELECTROCARDIOGRAM ST SEGMENT ELEVATION [None]
